FAERS Safety Report 6303405-7 (Version None)
Quarter: 2009Q3

REPORT INFORMATION
  Report Type: 
  Country: None (occurrence: None)
  Receive Date: 20090810
  Receipt Date: 20080918
  Transmission Date: 20100115
  Serious: No
  Sender: FDA-Public Use
  Company Number: US-TYCO HEALTHCARE/MALLINCKRODT-T200801524

PATIENT

DRUGS (3)
  1. PAMELOR [Suspect]
     Dosage: 25 MG, QD
     Dates: start: 20080901, end: 20080901
  2. PAMELOR [Suspect]
     Dosage: 50 MG, QD
     Dates: start: 20080901, end: 20080901
  3. PAMELOR [Suspect]
     Dosage: 75 MG, QD
     Dates: start: 20080901

REACTIONS (3)
  - EUPHORIC MOOD [None]
  - FEELING JITTERY [None]
  - INSOMNIA [None]
